FAERS Safety Report 6085913-X (Version None)
Quarter: 2009Q1

REPORT INFORMATION
  Report Type: 
  Country: None (occurrence: None)
  Receive Date: 20090217
  Receipt Date: 20080214
  Transmission Date: 20090719
  Serious: Yes (Life-Threatening, Other)
  Sender: FDA-Public Use
  Company Number: MC200800093

PATIENT
  Age: 37 Year
  Sex: Male
  Weight: 95.5 kg

DRUGS (5)
  1. ANGIOMAX [Suspect]
     Indication: PERCUTANEOUS CORONARY INTERVENTION
     Dosage: 14 ML (5MG/ML), BOLUS, IV BOLUS : 33 ML (5MG/ML), HR, INTRAVENOUS
     Route: 040
     Dates: start: 20080214, end: 20080214
  2. ANGIOMAX [Suspect]
     Indication: PERCUTANEOUS CORONARY INTERVENTION
     Dosage: 14 ML (5MG/ML), BOLUS, IV BOLUS : 33 ML (5MG/ML), HR, INTRAVENOUS
     Route: 040
     Dates: start: 20080214, end: 20080214
  3. NITROGLYCERIN [Concomitant]
  4. ASPIRIN [Concomitant]
  5. ANTIHYPERTENSIVES [Concomitant]

REACTIONS (3)
  - DRUG INEFFECTIVE [None]
  - HYPERTENSION [None]
  - STENT OCCLUSION [None]
